FAERS Safety Report 21158358 (Version 3)
Quarter: 2022Q3

REPORT INFORMATION
  Report Type: Report from Study
  Country: CN (occurrence: CN)
  Receive Date: 20220801
  Receipt Date: 20220912
  Transmission Date: 20221027
  Serious: Yes (Hospitalization)
  Sender: FDA-Public Use
  Company Number: CN-ABBVIE-22K-035-4481079-00

PATIENT
  Age: 35 Year
  Sex: Female
  Weight: 52.5 kg

DRUGS (2)
  1. UPADACITINIB [Suspect]
     Active Substance: UPADACITINIB
     Indication: Crohn^s disease
     Route: 048
     Dates: start: 20200313, end: 20200525
  2. UPADACITINIB [Suspect]
     Active Substance: UPADACITINIB
     Indication: Crohn^s disease
     Route: 048
     Dates: start: 20200526

REACTIONS (1)
  - Pharyngotonsillitis [Not Recovered/Not Resolved]

NARRATIVE: CASE EVENT DATE: 20220711
